FAERS Safety Report 7576196-X (Version None)
Quarter: 2011Q2

REPORT INFORMATION
  Report Type: 
  Country: None (occurrence: None)
  Receive Date: 20110628
  Receipt Date: 20110330
  Transmission Date: 20111010
  Serious: Yes (Death, Other)
  Sender: FDA-Public Use
  Company Number: US-BAYER-201041185NA

PATIENT
  Sex: Female

DRUGS (20)
  1. OPTIMARK [Suspect]
     Indication: ANGIOGRAM
     Dates: start: 20050722, end: 20050722
  2. RENAGEL [Concomitant]
  3. GLYBURIDE [Concomitant]
     Dosage: 2.5 MG, BID
  4. DIOVAN [Concomitant]
  5. OMNISCAN [Suspect]
  6. HUMALOG [Concomitant]
  7. EPOGEN [Concomitant]
  8. ZEMPLAR [Concomitant]
  9. CARVEDILOL [Concomitant]
     Indication: CARDIAC FAILURE CONGESTIVE
     Dosage: 25 MG, BID
  10. MAGNEVIST [Suspect]
     Indication: ANGIOGRAM
     Route: 042
     Dates: start: 20050722, end: 20050722
  11. OPTIMARK [Suspect]
  12. LOSARTAN POTASSIUM [Concomitant]
     Indication: HYPERTENSION
  13. HUMULIN [INSULIN HUMAN] [Concomitant]
  14. COREG [Concomitant]
  15. ATORVASTATIN [Concomitant]
     Dosage: 10 MG, UNK
  16. MAGNEVIST [Suspect]
  17. OMNISCAN [Suspect]
     Indication: ANGIOGRAM
     Dates: start: 20050722, end: 20050722
  18. AMLODIPINE [Concomitant]
     Indication: HYPERTENSION
  19. PHOSLO [Concomitant]
  20. ARANESP [Concomitant]
     Indication: ANAEMIA

REACTIONS (3)
  - SKIN FIBROSIS [None]
  - NEPHROGENIC SYSTEMIC FIBROSIS [None]
  - PAIN [None]
